FAERS Safety Report 9275578 (Version 2)
Quarter: 2013Q2

REPORT INFORMATION
  Report Type: Spontaneous
  Country: US (occurrence: US)
  Receive Date: 20130507
  Receipt Date: 20130523
  Transmission Date: 20140414
  Serious: Yes (Death, Hospitalization)
  Sender: FDA-Public Use
  Company Number: US-INCYTE CORPORATION-2013IN000885

PATIENT
  Age: 81 Year
  Sex: Female
  Weight: 51.7 kg

DRUGS (10)
  1. JAKAFI [Suspect]
     Indication: MYELOFIBROSIS
     Dosage: 20 MG, BID
     Route: 048
  2. LASIX [Concomitant]
     Dosage: 10 MG, BID
  3. IMDUR [Concomitant]
     Dosage: 20 MG, QD
  4. LEVOTHYROXINE [Concomitant]
     Dosage: 137 MCG, QD
  5. LOPRESSOR [Concomitant]
     Dosage: 25 MG, BID
  6. LOMOTIL [Concomitant]
     Dosage: 1 TO 2 MG BID
  7. MIRTAZAPINE [Concomitant]
     Dosage: 15 MG, QD
  8. ZOLPIDEM [Concomitant]
     Dosage: 15 MG, QD
  9. ZOFRAN [Concomitant]
     Dosage: 4 MG ODT Q6 HOURS PRN
  10. AUGMENTIN [Suspect]
     Dosage: NOT SPECIFIED

REACTIONS (4)
  - Myeloproliferative disorder [Fatal]
  - Pneumonia [Unknown]
  - Iron deficiency anaemia [Unknown]
  - Diarrhoea [Unknown]
